FAERS Safety Report 10247010 (Version 7)
Quarter: 2016Q2

REPORT INFORMATION
  Report Type: Spontaneous
  Country: US (occurrence: US)
  Receive Date: 20140619
  Receipt Date: 20160623
  Transmission Date: 20160815
  Serious: Yes (Hospitalization, Disabling, Other)
  Sender: FDA-Public Use
  Company Number: US-009507513-1406USA007314

PATIENT
  Sex: Male
  Weight: 75.74 kg

DRUGS (4)
  1. ROGAINE [Concomitant]
     Active Substance: MINOXIDIL
     Indication: ALOPECIA
     Dosage: UNK
     Route: 065
     Dates: start: 20120619
  2. FINASTERIDE. [Suspect]
     Active Substance: FINASTERIDE
     Indication: ANDROGENETIC ALOPECIA
     Dosage: 5 MG, 1/4 TAB, QD
     Route: 048
     Dates: start: 20120619, end: 20120627
  3. PROPECIA [Suspect]
     Active Substance: FINASTERIDE
     Indication: ALOPECIA
     Dosage: UNK
     Route: 048
     Dates: start: 2012
  4. AMLODIPINE BESYLATE. [Concomitant]
     Active Substance: AMLODIPINE BESYLATE
     Indication: ESSENTIAL HYPERTENSION
     Dosage: 5 MG, QD
     Route: 048
     Dates: start: 201006, end: 201407

REACTIONS (47)
  - Feeling abnormal [Not Recovered/Not Resolved]
  - Depression [Not Recovered/Not Resolved]
  - Ejaculation failure [Not Recovered/Not Resolved]
  - Testicular atrophy [Unknown]
  - Genital hypoaesthesia [Unknown]
  - Weight increased [Not Recovered/Not Resolved]
  - Disturbance in attention [Not Recovered/Not Resolved]
  - Nausea [Unknown]
  - Panic attack [Recovering/Resolving]
  - Hypogonadism male [Recovered/Resolved]
  - Drug hypersensitivity [Unknown]
  - Libido decreased [Not Recovered/Not Resolved]
  - Testicular pain [Unknown]
  - Rectal polyp [Unknown]
  - Chest pain [Unknown]
  - Cognitive disorder [Not Recovered/Not Resolved]
  - Ejaculation disorder [Not Recovered/Not Resolved]
  - Faeces discoloured [Unknown]
  - Drug administration error [Unknown]
  - Major depression [Unknown]
  - Sexual dysfunction [Not Recovered/Not Resolved]
  - Fatigue [Not Recovered/Not Resolved]
  - Chest pain [Unknown]
  - Asthenia [Unknown]
  - Blood testosterone decreased [Unknown]
  - Breast tenderness [Unknown]
  - Suicidal ideation [Unknown]
  - Diarrhoea [Unknown]
  - Erectile dysfunction [Not Recovered/Not Resolved]
  - Dyspepsia [Unknown]
  - Insomnia [Not Recovered/Not Resolved]
  - Presyncope [Unknown]
  - Vertigo [Unknown]
  - Mental impairment [Unknown]
  - Coordination abnormal [Recovering/Resolving]
  - Dizziness [Unknown]
  - Weight decreased [Unknown]
  - Panic attack [Unknown]
  - Breast enlargement [Unknown]
  - Reproductive tract disorder [Not Recovered/Not Resolved]
  - Anxiety [Not Recovered/Not Resolved]
  - Dyspnoea [Unknown]
  - Wrong technique in product usage process [Unknown]
  - Suicidal ideation [Unknown]
  - Muscle atrophy [Unknown]
  - Vision blurred [Unknown]
  - Influenza like illness [Unknown]

NARRATIVE: CASE EVENT DATE: 201206
